FAERS Safety Report 5600523-3 (Version None)
Quarter: 2008Q1

REPORT INFORMATION
  Report Type: 
  Country: None (occurrence: None)
  Receive Date: 20080116
  Receipt Date: 20080102
  Transmission Date: 20080703
  Serious: Yes (Other)
  Sender: FDA-Public Use
  Company Number: POMP-10867

PATIENT
  Age: 46 Year
  Sex: Female
  Weight: 72.9 kg

DRUGS (26)
  1. MYOZYME [Suspect]
     Indication: GLYCOGEN STORAGE DISEASE TYPE II
     Dosage: 20 MG/KG, Q2W, INTRAVENOUS; 20 MG/KG, Q2W, INTRAVENOUS
     Route: 042
     Dates: start: 20060119, end: 20061027
  2. MYOZYME [Suspect]
     Indication: GLYCOGEN STORAGE DISEASE TYPE II
     Dosage: 20 MG/KG, Q2W, INTRAVENOUS; 20 MG/KG, Q2W, INTRAVENOUS
     Route: 042
     Dates: start: 20061127, end: 20070720
  3. MYOZYME [Suspect]
  4. MYOZYME [Suspect]
  5. MYOZYME [Suspect]
  6. MYOZYME [Suspect]
  7. MYOZYME [Suspect]
  8. MYOZYME [Suspect]
  9. MYOZYME [Suspect]
  10. MYOZYME [Suspect]
  11. ACETAMINOPHEN [Concomitant]
  12. LEVOTHYROXINE SODIUM [Concomitant]
  13. LEVOTHYROXINE SODIUM [Concomitant]
  14. CLARITIN [Concomitant]
  15. ADVIL [Concomitant]
  16. ADVAIR DISKUS 100/50 [Concomitant]
  17. FOSAMAX [Concomitant]
  18. CLOBETASOL (CLOBETASOL) [Concomitant]
  19. ZOLOFT [Concomitant]
  20. NASONEX [Concomitant]
  21. CIPROFLOXACIN [Concomitant]
  22. CIPROFLOXACIN [Concomitant]
  23. CIPROFLOXACIN [Concomitant]
  24. DETROL [Concomitant]
  25. NAPROXEN [Concomitant]
  26. IMODIUM [Concomitant]

REACTIONS (11)
  - AUTOIMMUNE DISORDER [None]
  - CONTUSION [None]
  - ECZEMA [None]
  - EXCORIATION [None]
  - PAIN IN EXTREMITY [None]
  - PSEUDOMONAS INFECTION [None]
  - SEPTAL PANNICULITIS [None]
  - SKIN ULCER [None]
  - TENDON PAIN [None]
  - TYPE III IMMUNE COMPLEX MEDIATED REACTION [None]
  - VIRAL INFECTION [None]
